FAERS Safety Report 17904985 (Version 1)
Quarter: 2020Q2

REPORT INFORMATION
  Report Type: Spontaneous
  Country: US (occurrence: US)
  Receive Date: 20200616
  Receipt Date: 20200616
  Transmission Date: 20200714
  Serious: No
  Sender: FDA-Public Use
  Company Number: US-ANIPHARMA-2019-US-012640

PATIENT
  Age: 67 Year
  Sex: Female
  Weight: 40.82 kg

DRUGS (5)
  1. CARVEDILOL. [Concomitant]
     Active Substance: CARVEDILOL
  2. OMEPRAZOLE. [Concomitant]
     Active Substance: OMEPRAZOLE
  3. ZOFRAN [Concomitant]
     Active Substance: ONDANSETRON HYDROCHLORIDE
  4. OXYCODONE HYDROCHLORIDE ORAL SOLUTION [Suspect]
     Active Substance: OXYCODONE HYDROCHLORIDE
     Indication: ANALGESIC THERAPY
     Dosage: 5CC
     Route: 048
     Dates: start: 20190706, end: 20190706
  5. OXYCODONE HYDROCHLORIDE ORAL SOLUTION [Suspect]
     Active Substance: OXYCODONE HYDROCHLORIDE
     Indication: ANALGESIC THERAPY
     Dates: start: 20190706, end: 20190706

REACTIONS (2)
  - Product taste abnormal [Unknown]
  - Throat irritation [Unknown]

NARRATIVE: CASE EVENT DATE: 20190706
